FAERS Safety Report 13587349 (Version 2)
Quarter: 2017Q2

REPORT INFORMATION
  Report Type: Report from Study
  Country: None (occurrence: US)
  Receive Date: 20170526
  Receipt Date: 20170607
  Transmission Date: 20170830
  Serious: Yes (Life-Threatening, Other)
  Sender: FDA-Public Use
  Company Number: US-ABBVIE-17P-163-1987139-00

PATIENT
  Sex: Male

DRUGS (2)
  1. VENETOCLAX [Suspect]
     Active Substance: VENETOCLAX
     Route: 048
     Dates: end: 20170519
  2. VENETOCLAX [Suspect]
     Active Substance: VENETOCLAX
     Indication: CHRONIC LYMPHOCYTIC LEUKAEMIA
     Dosage: STARTER PACK FOR 4 WEEKS
     Route: 048
     Dates: start: 20170403

REACTIONS (3)
  - Transfusion [Unknown]
  - Therapy non-responder [Not Recovered/Not Resolved]
  - Hospice care [Not Recovered/Not Resolved]
